FAERS Safety Report 11598696 (Version 1)
Quarter: 2015Q3

REPORT INFORMATION
  Report Type: Spontaneous
  Country: US (occurrence: US)
  Receive Date: 20150916
  Receipt Date: 20150916
  Transmission Date: 20151125
  Serious: No
  Sender: FDA-Public Use
  Company Number: US-ELI_LILLY_AND_COMPANY-US200712002114

PATIENT
  Age: 54 Year
  Sex: Female

DRUGS (2)
  1. HORMONES NOS [Concomitant]
     Active Substance: UNSPECIFIED INGREDIENT
  2. FORTEO [Suspect]
     Active Substance: TERIPARATIDE
     Indication: OSTEOPOROSIS
     Dates: start: 20071114

REACTIONS (2)
  - Rash erythematous [Not Recovered/Not Resolved]
  - Dermatitis herpetiformis [Not Recovered/Not Resolved]

NARRATIVE: CASE EVENT DATE: 200712
